FAERS Safety Report 8454900-6 (Version None)
Quarter: 2012Q2

REPORT INFORMATION
  Report Type: 
  Country: None (occurrence: None)
  Receive Date: 20120615
  Receipt Date: 20120615
  Transmission Date: 20120825
  Serious: No
  Sender: FDA-Public Use
  Company Number: None

PATIENT
  Sex: Female
  Weight: 48.9885 kg

DRUGS (1)
  1. BONIVA [Suspect]
     Indication: OSTEOPOROSIS
     Dates: start: 20120418

REACTIONS (5)
  - MIDDLE INSOMNIA [None]
  - MYALGIA [None]
  - MOVEMENT DISORDER [None]
  - ARTHRALGIA [None]
  - PARAESTHESIA [None]
